FAERS Safety Report 8865781 (Version 1)
Quarter: 2012Q4

REPORT INFORMATION
  Report Type: 
  Country: US (occurrence: US)
  Receive Date: 20121024
  Receipt Date: 20121024
  Transmission Date: 20130627
  Serious: No
  Sender: FDA-Public Use
  Company Number: US-AMGEN-USASP2012004220

PATIENT
  Age: 0 Year
  Sex: Female

DRUGS (7)
  1. ENBREL [Suspect]
     Dosage: 50 mg, qwk
     Route: 064
     Dates: start: 200903
  2. XOPENEX [Concomitant]
     Dosage: UNK UNK, prn
     Route: 064
  3. PREDNISONE [Concomitant]
     Dosage: 10 mg, bid
     Route: 064
  4. PLAQUENIL                          /00072602/ [Concomitant]
     Dosage: UNK
     Route: 064
  5. SULFASALAZINE [Concomitant]
     Dosage: UNK
     Route: 064
  6. VITAMINS                           /00067501/ [Concomitant]
     Dosage: UNK
     Route: 064
  7. PRENATAL VITAMINS                  /01549301/ [Concomitant]
     Dosage: UNK UNK, qd

REACTIONS (1)
  - Jaundice neonatal [Recovered/Resolved]
